FAERS Safety Report 7416072-6 (Version None)
Quarter: 2011Q2

REPORT INFORMATION
  Report Type: 
  Country: None (occurrence: None)
  Receive Date: 20110414
  Receipt Date: 20110406
  Transmission Date: 20111010
  Serious: Yes (Hospitalization, Other)
  Sender: FDA-Public Use
  Company Number: BR-US-EMD SERONO, INC.-7043561

PATIENT
  Sex: Female

DRUGS (4)
  1. REBIF [Suspect]
     Indication: RELAPSING-REMITTING MULTIPLE SCLEROSIS
     Dates: start: 20101103, end: 20101201
  2. REBIF [Suspect]
  3. REBIF [Suspect]
     Dates: start: 20101201
  4. LEXAPRO [Concomitant]

REACTIONS (10)
  - MULTIPLE SCLEROSIS RELAPSE [None]
  - AFFECT LABILITY [None]
  - TREMOR [None]
  - NON-CARDIAC CHEST PAIN [None]
  - CENTRAL NERVOUS SYSTEM LESION [None]
  - BLINDNESS [None]
  - PARAESTHESIA [None]
  - HYPERTENSION [None]
  - HEPATIC ENZYME ABNORMAL [None]
  - INFLUENZA LIKE ILLNESS [None]
